FAERS Safety Report 7570637-X (Version None)
Quarter: 2011Q2

REPORT INFORMATION
  Report Type: 
  Country: None (occurrence: None)
  Receive Date: 20110622
  Receipt Date: 20110622
  Transmission Date: 20111010
  Serious: No
  Sender: FDA-Public Use
  Company Number: None

PATIENT
  Age: 69 Year
  Sex: Female
  Weight: 77.3 kg

DRUGS (1)
  1. METAXALONE [Suspect]
     Indication: PAIN MANAGEMENT
     Dosage: 800 MG 3 TIMES PER DAY ORAL 047
     Route: 048

REACTIONS (1)
  - NIGHTMARE [None]
